FAERS Safety Report 6044397-8 (Version None)
Quarter: 2009Q1

REPORT INFORMATION
  Report Type: 
  Country: None (occurrence: None)
  Receive Date: 20090120
  Receipt Date: 20081231
  Transmission Date: 20090719
  Serious: No
  Sender: FDA-Public Use
  Company Number: US-BAYER-200910014BCC

PATIENT
  Age: 80 Year
  Sex: Female

DRUGS (5)
  1. ALEVE (CAPLET) [Suspect]
     Indication: TOOTH ABSCESS
     Dosage: TOTAL DAILY DOSE: 880 MG  UNIT DOSE: 220 MG
     Dates: start: 20081230
  2. ALEVE (CAPLET) [Suspect]
     Dosage: TOTAL DAILY DOSE: 220 MG  UNIT DOSE: 220 MG
     Dates: start: 20081231
  3. PENICILLIN G POTASSIUM FOR ORAL SOLUTION [Concomitant]
  4. BLOOD PRESSURE PILL (NOS) [Concomitant]
     Indication: HYPERTENSION
  5. PILL FOR HIGH CHOLESTEROL (NOS) [Concomitant]
     Indication: BLOOD CHOLESTEROL INCREASED

REACTIONS (2)
  - ABDOMINAL PAIN [None]
  - TOOTH ABSCESS [None]
